FAERS Safety Report 4881475-0 (Version None)
Quarter: 2006Q1

REPORT INFORMATION
  Report Type: 
  Country: None (occurrence: None)
  Receive Date: 20060116
  Receipt Date: 20060109
  Transmission Date: 20060701
  Serious: Yes (Hospitalization)
  Sender: FDA-Public Use
  Company Number: PHNU2006DE00489

PATIENT
  Age: 65 Year
  Sex: Male

DRUGS (2)
  1. CO-DIOVAN FORTE [Suspect]
     Indication: BLOOD PRESSURE
     Dosage: 1 DF, QD
     Dates: start: 20051122, end: 20051222
  2. DOXYCYCLINE [Concomitant]
     Indication: ERYSIPELAS

REACTIONS (3)
  - ERYSIPELAS [None]
  - OEDEMA PERIPHERAL [None]
  - VASCULITIS [None]
